FAERS Safety Report 16184882 (Version 3)
Quarter: 2019Q3

REPORT INFORMATION
  Report Type: Report from Study
  Country: US (occurrence: US)
  Receive Date: 20190411
  Receipt Date: 20190807
  Transmission Date: 20191004
  Serious: No
  Sender: FDA-Public Use
  Company Number: PHEH2019US015419

PATIENT
  Sex: Male

DRUGS (1)
  1. ENTRESTO [Suspect]
     Active Substance: SACUBITRIL\VALSARTAN
     Indication: PRODUCT USED FOR UNKNOWN INDICATION
     Dosage: UNK
     Route: 048

REACTIONS (6)
  - Weight increased [Unknown]
  - Blood potassium decreased [Unknown]
  - Malaise [Unknown]
  - Muscle spasms [Unknown]
  - Withdrawal syndrome [Unknown]
  - Feeling abnormal [Unknown]
